FAERS Safety Report 26046156 (Version 1)
Quarter: 2025Q4

REPORT INFORMATION
  Report Type: Spontaneous
  Country: US (occurrence: US)
  Receive Date: 20251114
  Receipt Date: 20251114
  Transmission Date: 20260118
  Serious: No
  Sender: OPTINOSE INC
  Company Number: US-OptiNose US, Inc-2024OPT000127

PATIENT
  Age: 62 Year
  Sex: Female

DRUGS (2)
  1. XHANCE [Suspect]
     Active Substance: FLUTICASONE PROPIONATE
     Indication: Product used for unknown indication
     Dosage: 372 MICROGRAM, QD
     Route: 045
     Dates: start: 20240923, end: 20240927
  2. DEVICE [Suspect]
     Active Substance: DEVICE
     Indication: Product used for unknown indication
     Dosage: UNK UNK

REACTIONS (4)
  - Anxiety [Unknown]
  - Feeling jittery [Unknown]
  - Panic disorder [Unknown]
  - Device use issue [Recovered/Resolved]

NARRATIVE: CASE EVENT DATE: 20240923
